FAERS Safety Report 7622026-7 (Version None)
Quarter: 2011Q3

REPORT INFORMATION
  Report Type: 
  Country: None (occurrence: None)
  Receive Date: 20110720
  Receipt Date: 20101124
  Transmission Date: 20111222
  Serious: Yes (Hospitalization)
  Sender: FDA-Public Use
  Company Number: AT-BAYER-2010-000178

PATIENT
  Age: 50 Year
  Sex: Female

DRUGS (2)
  1. AVELOX [Suspect]
     Indication: BRONCHITIS
     Dosage: 400 MG, 2 TABLETS
     Route: 048
     Dates: start: 20100301, end: 20100101
  2. AVELOX [Suspect]
     Dosage: UNK
     Dates: start: 20100301

REACTIONS (4)
  - NAUSEA [None]
  - PANIC ATTACK [None]
  - HYPERHIDROSIS [None]
  - TACHYCARDIA [None]
